FAERS Safety Report 4754126-3 (Version None)
Quarter: 2005Q3

REPORT INFORMATION
  Report Type: 
  Country: None (occurrence: None)
  Receive Date: 20050825
  Receipt Date: 20040913
  Transmission Date: 20060218
  Serious: Yes (Other)
  Sender: FDA-Public Use
  Company Number: HQWYE099516SEP04

PATIENT
  Age: 24 Month
  Sex: Male
  Weight: 13.62 kg

DRUGS (1)
  1. ADVIL [Suspect]
     Indication: PYREXIA
     Dosage: PER LABELING AS NEEDED, ORAL
     Route: 048
     Dates: start: 20040907, end: 20040910

REACTIONS (2)
  - EXCITABILITY [None]
  - INSOMNIA [None]
